FAERS Safety Report 8848269 (Version 2)
Quarter: 2012Q4

REPORT INFORMATION
  Report Type: 
  Country: FR (occurrence: FR)
  Receive Date: 20121018
  Receipt Date: 20121203
  Transmission Date: 20130627
  Serious: Yes (Hospitalization, Other)
  Sender: FDA-Public Use
  Company Number: FR-ROCHE-1146745

PATIENT
  Sex: Female

DRUGS (6)
  1. LUCENTIS [Suspect]
     Indication: MACULAR DEGENERATION
     Route: 050
     Dates: start: 20101015
  2. LUCENTIS [Suspect]
     Route: 050
     Dates: start: 20101112
  3. LUCENTIS [Suspect]
     Route: 050
     Dates: start: 20110413
  4. LUCENTIS [Suspect]
     Route: 050
     Dates: start: 20110513
  5. LUCENTIS [Suspect]
     Route: 050
     Dates: start: 20111026
  6. LUCENTIS [Suspect]
     Route: 050
     Dates: start: 20111123

REACTIONS (1)
  - Cerebrovascular accident [Unknown]
